FAERS Safety Report 8280379-3 (Version None)
Quarter: 2012Q2

REPORT INFORMATION
  Report Type: 
  Country: None (occurrence: None)
  Receive Date: 20120412
  Receipt Date: 20111123
  Transmission Date: 20120825
  Serious: No
  Sender: FDA-Public Use
  Company Number: US-ASTRAZENECA-2011SE71870

PATIENT
  Age: 28 Year
  Sex: Male

DRUGS (2)
  1. NEXIUM [Suspect]
     Dosage: 1 CAPSULE
     Route: 048
  2. NEXIUM [Suspect]
     Dosage: 2 CAPSULE
     Route: 048

REACTIONS (2)
  - DYSPEPSIA [None]
  - INAPPROPRIATE SCHEDULE OF DRUG ADMINISTRATION [None]
